FAERS Safety Report 24709646 (Version 1)
Quarter: 2024Q4

REPORT INFORMATION
  Report Type: Spontaneous
  Country: FR (occurrence: FR)
  Receive Date: 20241209
  Receipt Date: 20241209
  Transmission Date: 20250115
  Serious: Yes (Hospitalization, Other)
  Sender: AUROBINDO
  Company Number: FR-AFSSAPS-AVCN2024000872

PATIENT
  Age: 19 Year
  Sex: Female

DRUGS (8)
  1. DIAZEPAM [Suspect]
     Active Substance: DIAZEPAM
     Indication: Product used for unknown indication
     Dosage: UNK
     Route: 048
     Dates: end: 20241026
  2. AMPHETAMINE [Suspect]
     Active Substance: AMPHETAMINE
     Indication: Product used for unknown indication
     Dosage: UNK
     Route: 045
     Dates: start: 20241026, end: 20241026
  3. COCAINE [Suspect]
     Active Substance: COCAINE
     Indication: Product used for unknown indication
     Dosage: FREQUENT
     Route: 065
  4. CANNABIS SATIVA SUBSP. INDICA TOP [Suspect]
     Active Substance: CANNABIS SATIVA SUBSP. INDICA TOP
     Indication: Product used for unknown indication
     Dosage: 2 JOINTS PER DAY
  5. MIDOMAFETAMINE [Suspect]
     Active Substance: MIDOMAFETAMINE
     Indication: Product used for unknown indication
     Dosage: FREQUENT
     Route: 065
  6. ACETAMINOPHEN\OPIUM [Suspect]
     Active Substance: ACETAMINOPHEN\OPIUM
     Indication: Product used for unknown indication
     Dosage: UNK
     Route: 048
     Dates: end: 20241026
  7. OXAZEPAM [Suspect]
     Active Substance: OXAZEPAM
     Indication: Product used for unknown indication
     Dosage: 10 MILLIGRAM
     Route: 048
     Dates: start: 20241025, end: 20241025
  8. CYAMEMAZINE [Suspect]
     Active Substance: CYAMEMAZINE
     Indication: Product used for unknown indication
     Dosage: UNK
     Route: 048
     Dates: start: 20241026, end: 20241026

REACTIONS (5)
  - Drug abuse [Not Recovered/Not Resolved]
  - Poisoning deliberate [Recovered/Resolved]
  - Somnolence [Recovered/Resolved]
  - Tachycardia [Recovered/Resolved]
  - Agitation [Recovering/Resolving]

NARRATIVE: CASE EVENT DATE: 20241025
